FAERS Safety Report 20461157 (Version 1)
Quarter: 2022Q1

REPORT INFORMATION
  Report Type: Spontaneous
  Country: FR (occurrence: None)
  Receive Date: 20220211
  Receipt Date: 20220211
  Transmission Date: 20220424
  Serious: Yes (Death)
  Sender: FDA-Public Use
  Company Number: 2022A055281

PATIENT
  Age: 63 Year
  Sex: Female

DRUGS (5)
  1. ENHERTU [Suspect]
     Active Substance: FAM-TRASTUZUMAB DERUXTECAN-NXKI
     Indication: Breast cancer
     Dosage: UNK
     Route: 065
  2. OMEPRAZOLE [Suspect]
     Active Substance: OMEPRAZOLE
     Indication: Product used for unknown indication
     Dosage: 20 MG, QD
     Route: 065
  3. COLCHICINE\DICYCLOMINE HYDROCHLORIDE [Suspect]
     Active Substance: COLCHICINE\DICYCLOMINE HYDROCHLORIDE
     Indication: Product used for unknown indication
     Dosage: UNK
     Route: 065
  4. TIEMONIUM [Suspect]
     Active Substance: TIEMONIUM
     Indication: Product used for unknown indication
     Dosage: UNK
     Route: 048
  5. ENOXAPARIN SODIUM [Suspect]
     Active Substance: ENOXAPARIN SODIUM
     Indication: Cardiovascular event prophylaxis
     Dosage: 1 DF, QD
     Route: 058
     Dates: start: 202007

REACTIONS (5)
  - Condition aggravated [Fatal]
  - Respiratory distress [Fatal]
  - Pulmonary embolism [Fatal]
  - Pneumonia [Fatal]
  - Interstitial lung disease [Fatal]

NARRATIVE: CASE EVENT DATE: 20211227
